FAERS Safety Report 10460882 (Version 1)
Quarter: 2014Q3

REPORT INFORMATION
  Report Type: Spontaneous
  Country: US (occurrence: None)
  Receive Date: 20140917
  Receipt Date: 20140917
  Transmission Date: 20150326
  Serious: Yes (Death)
  Sender: FDA-Public Use
  Company Number: None

PATIENT
  Age: 70 Year
  Sex: Male
  Weight: 57.2 kg

DRUGS (2)
  1. DAUNORUBICIN [Suspect]
     Active Substance: DAUNORUBICIN
     Dates: start: 20140807
  2. CYTARABINE. [Suspect]
     Active Substance: CYTARABINE
     Dates: start: 20140808

REACTIONS (12)
  - Acute respiratory failure [None]
  - Metabolic acidosis [None]
  - Respiratory acidosis [None]
  - Abnormal loss of weight [None]
  - Bacteraemia [None]
  - Renal failure acute [None]
  - Febrile neutropenia [None]
  - Disease recurrence [None]
  - Septic shock [None]
  - Acute myocardial infarction [None]
  - Fatigue [None]
  - Hypotension [None]

NARRATIVE: CASE EVENT DATE: 20140910
